FAERS Safety Report 6092768-6 (Version None)
Quarter: 2009Q1

REPORT INFORMATION
  Report Type: 
  Country: None (occurrence: None)
  Receive Date: 20090225
  Receipt Date: 20090224
  Transmission Date: 20090719
  Serious: Yes (Life-Threatening, Hospitalization, Disabling, Other)
  Sender: FDA-Public Use
  Company Number: AU-WYE-G03178409

PATIENT
  Age: 40 Year
  Sex: Female
  Weight: 48.9 kg

DRUGS (2)
  1. PRISTIQ [Suspect]
     Indication: DEPRESSION
     Route: 048
     Dates: start: 20081128
  2. TIBOLONE [Concomitant]
     Indication: MENOPAUSE
     Route: 048
     Dates: start: 20081222

REACTIONS (3)
  - CEREBRAL HAEMORRHAGE [None]
  - DISORIENTATION [None]
  - MEMORY IMPAIRMENT [None]
